FAERS Safety Report 7067566-7 (Version None)
Quarter: 2010Q4

REPORT INFORMATION
  Report Type: 
  Country: None (occurrence: None)
  Receive Date: 20101020
  Receipt Date: 20100927
  Transmission Date: 20110411
  Serious: Yes (Other)
  Sender: FDA-Public Use
  Company Number: 2010P1001714

PATIENT
  Age: 25 Year
  Sex: Female

DRUGS (1)
  1. METHIMAZOLE [Suspect]
     Indication: HYPERTHYROIDISM
     Dosage: 10 MG; QD; PO
     Route: 048

REACTIONS (3)
  - ARTHRALGIA [None]
  - CUTANEOUS VASCULITIS [None]
  - DISEASE RECURRENCE [None]
